FAERS Safety Report 19064250 (Version 2)
Quarter: 2021Q2

REPORT INFORMATION
  Report Type: Report from Study
  Country: US (occurrence: US)
  Receive Date: 20210326
  Receipt Date: 20210427
  Transmission Date: 20210717
  Serious: Yes (Death)
  Sender: FDA-Public Use
  Company Number: US-PFIZER INC-2021323641

PATIENT
  Age: 70 Year

DRUGS (2)
  1. FUROSEMIDE. [Suspect]
     Active Substance: FUROSEMIDE
     Indication: ACUTE KIDNEY INJURY
     Dosage: 200?400 MG
  2. DOPAMINE HCL [Suspect]
     Active Substance: DOPAMINE HYDROCHLORIDE
     Indication: ACUTE KIDNEY INJURY
     Dosage: UNK

REACTIONS (3)
  - Renal failure [Fatal]
  - Sepsis [Fatal]
  - Drug ineffective [Fatal]
